FAERS Safety Report 24213921 (Version 1)
Quarter: 2024Q3

REPORT INFORMATION
  Report Type: Spontaneous
  Country: US (occurrence: None)
  Receive Date: 20240814
  Receipt Date: 20240814
  Transmission Date: 20241016
  Serious: Yes (Disabling, Other)
  Sender: Public
  Company Number: None

PATIENT
  Age: 85 Year
  Sex: Female

DRUGS (1)
  1. VABYSMO [Suspect]
     Active Substance: FARICIMAB\FARICIMAB-SVOA

REACTIONS (6)
  - Endophthalmitis [None]
  - Blindness unilateral [None]
  - Vitreous floaters [None]
  - Visual impairment [None]
  - Gait disturbance [None]
  - Balance disorder [None]

NARRATIVE: CASE EVENT DATE: 20240527
